FAERS Safety Report 18191606 (Version 4)
Quarter: 2021Q1

REPORT INFORMATION
  Report Type: Spontaneous
  Country: US (occurrence: US)
  Receive Date: 20200824
  Receipt Date: 20210301
  Transmission Date: 20210419
  Serious: Yes (Death, Hospitalization)
  Sender: FDA-Public Use
  Company Number: US-ELI_LILLY_AND_COMPANY-US202008006426

PATIENT
  Age: 51 Year
  Sex: Female

DRUGS (5)
  1. ADCIRCA [Suspect]
     Active Substance: TADALAFIL
     Indication: PULMONARY ARTERIAL HYPERTENSION
     Dosage: 40 MG, DAILY
     Route: 048
     Dates: start: 20190131, end: 20210220
  2. REMODULIN [Suspect]
     Active Substance: TREPROSTINIL
     Indication: OEDEMA
  3. REMODULIN [Suspect]
     Active Substance: TREPROSTINIL
     Indication: HYPOXIA
     Dosage: 17.7 NG/KG/MIN, CONTINUOUS
     Route: 058
     Dates: start: 20210125, end: 20210220
  4. REMODULIN [Suspect]
     Active Substance: TREPROSTINIL
     Indication: DYSPNOEA
     Dosage: UNK UNK, UNKNOWN
     Route: 042
  5. REMODULIN [Suspect]
     Active Substance: TREPROSTINIL
     Indication: PULMONARY ARTERIAL HYPERTENSION

REACTIONS (7)
  - Oedema [Unknown]
  - Pneumonia [Unknown]
  - Death [Fatal]
  - Hypoxia [Unknown]
  - Dyspnoea [Unknown]
  - Dyspnoea exertional [Unknown]
  - Respiratory failure [Unknown]

NARRATIVE: CASE EVENT DATE: 20200805
